FAERS Safety Report 5215583-1 (Version None)
Quarter: 2007Q1

REPORT INFORMATION
  Report Type: 
  Country: None (occurrence: None)
  Receive Date: 20070123
  Receipt Date: 20070116
  Transmission Date: 20070707
  Serious: Yes (Other)
  Sender: FDA-Public Use
  Company Number: BR-ELI_LILLY_AND_COMPANY-BR200701003044

PATIENT
  Sex: Female

DRUGS (1)
  1. HUMAN INSULIN (RDNA ORIGIN) [Suspect]
     Dosage: UNK, UNKNOWN
     Route: 065
     Dates: start: 19920101

REACTIONS (2)
  - COMA [None]
  - PAIN [None]
